FAERS Safety Report 13984023 (Version 1)
Quarter: 2017Q3

REPORT INFORMATION
  Report Type: Spontaneous
  Country: GB (occurrence: GB)
  Receive Date: 20170918
  Receipt Date: 20170918
  Transmission Date: 20171128
  Serious: Yes (Death)
  Sender: FDA-Public Use
  Company Number: GB-PFIZER INC-2017023039

PATIENT
  Age: 78 Year
  Sex: Male

DRUGS (1)
  1. NEURONTIN [Suspect]
     Active Substance: GABAPENTIN
     Indication: SPINAL PAIN
     Dosage: UNK

REACTIONS (3)
  - Death [Fatal]
  - Product use in unapproved indication [Unknown]
  - Dysphagia [Unknown]
